FAERS Safety Report 5733733-5 (Version None)
Quarter: 2008Q2

REPORT INFORMATION
  Report Type: 
  Country: None (occurrence: None)
  Receive Date: 20080509
  Receipt Date: 20080503
  Transmission Date: 20081010
  Serious: Yes (Other)
  Sender: FDA-Public Use
  Company Number: BR-PFIZER INC-2007091971

PATIENT
  Sex: Female

DRUGS (6)
  1. LIPITOR [Suspect]
     Indication: BLOOD TRIGLYCERIDES
     Route: 048
  2. LIPITOR [Suspect]
     Indication: LIPID METABOLISM DISORDER
  3. LIPITOR [Suspect]
     Indication: BLOOD CHOLESTEROL INCREASED
  4. EUTHYROX [Concomitant]
     Route: 048
  5. OXCORD [Concomitant]
     Route: 048
  6. SUSTRATE [Concomitant]
     Route: 048

REACTIONS (1)
  - THYROID OPERATION [None]
